FAERS Safety Report 6924428-0 (Version None)
Quarter: 2010Q3

REPORT INFORMATION
  Report Type: 
  Country: None (occurrence: None)
  Receive Date: 20100811
  Receipt Date: 20100802
  Transmission Date: 20110219
  Serious: Yes (Hospitalization)
  Sender: FDA-Public Use
  Company Number: TPA2010A03896

PATIENT
  Age: 66 Year
  Sex: Male

DRUGS (3)
  1. PIOGLITAZONE HCL [Suspect]
     Indication: TYPE 2 DIABETES MELLITUS
     Dosage: 30 MG, ORAL
     Route: 048
     Dates: start: 20091217
  2. GLIMEPIRIDE [Suspect]
     Indication: TYPE 2 DIABETES MELLITUS
     Dosage: 4 MG, ORAL
     Route: 048
  3. METFORMIN HYDROCHLORIDE TABLET(METFORMIN HYDROCHLORIDE)(TABLETS) [Suspect]
     Indication: TYPE 2 DIABETES MELLITUS

REACTIONS (5)
  - GOITRE [None]
  - INFARCTION [None]
  - THROAT TIGHTNESS [None]
  - THYROID ADENOMA [None]
  - UPPER RESPIRATORY TRACT CONGESTION [None]
